FAERS Safety Report 16346076 (Version 1)
Quarter: 2019Q2

REPORT INFORMATION
  Report Type: Spontaneous
  Country: US (occurrence: US)
  Receive Date: 20190523
  Receipt Date: 20190523
  Transmission Date: 20190711
  Serious: Yes (Other)
  Sender: FDA-Public Use
  Company Number: US-ROCHE-2312553

PATIENT
  Age: 31 Year
  Sex: Male

DRUGS (1)
  1. OCREVUS [Suspect]
     Active Substance: OCRELIZUMAB
     Indication: PRODUCT USED FOR UNKNOWN INDICATION
     Dosage: 12/OCT/2018, 02/APR/2019 RECEIVED DOSE OF OCRELIZUMAB.
     Route: 042
     Dates: start: 20180925

REACTIONS (5)
  - Medication error [Unknown]
  - Clumsiness [Unknown]
  - Somnolence [Unknown]
  - Multiple sclerosis [Unknown]
  - Fine motor skill dysfunction [Unknown]

NARRATIVE: CASE EVENT DATE: 20190402
